FAERS Safety Report 19131178 (Version 1)
Quarter: 2021Q2

REPORT INFORMATION
  Report Type: Other
  Country: CA (occurrence: CA)
  Receive Date: 20210414
  Receipt Date: 20210414
  Transmission Date: 20210717
  Serious: Yes (Other)
  Sender: FDA-Public Use
  Company Number: CA-ROCHE-2655518

PATIENT
  Age: 80 Year
  Sex: Male

DRUGS (13)
  1. RITUXAN [Suspect]
     Active Substance: RITUXIMAB
     Indication: RHEUMATOID ARTHRITIS
     Dosage: ONGOING, DAY 1 AND 15
     Route: 041
     Dates: start: 20141128
  2. DIPHENHYDRAMINE HCL [Concomitant]
     Active Substance: DIPHENHYDRAMINE HYDROCHLORIDE
     Route: 048
     Dates: start: 20141212
  3. GARLIC. [Concomitant]
     Active Substance: GARLIC
  4. NEXIUM [Concomitant]
     Active Substance: ESOMEPRAZOLE MAGNESIUM
     Dosage: ONGOING
  5. AVAMYS [Concomitant]
     Active Substance: FLUTICASONE FUROATE
  6. METHOTREXATE. [Concomitant]
     Active Substance: METHOTREXATE
  7. MELOXICAM. [Concomitant]
     Active Substance: MELOXICAM
  8. CALCIUM [Concomitant]
     Active Substance: CALCIUM
  9. FOLIC ACID. [Concomitant]
     Active Substance: FOLIC ACID
  10. METHYLPREDNISOLONE. [Concomitant]
     Active Substance: METHYLPREDNISOLONE
     Indication: PREMEDICATION
     Route: 042
     Dates: start: 20141212
  11. ACETAMINOPHEN. [Concomitant]
     Active Substance: ACETAMINOPHEN
     Route: 048
     Dates: start: 20141212
  12. RITUXAN [Suspect]
     Active Substance: RITUXIMAB
     Dosage: DAY 1 AND 15
     Route: 041
     Dates: start: 2013
  13. CYCLOBENZAPRINE. [Concomitant]
     Active Substance: CYCLOBENZAPRINE

REACTIONS (2)
  - Cataract [Unknown]
  - Acrochordon [Recovered/Resolved]

NARRATIVE: CASE EVENT DATE: 202103
